FAERS Safety Report 13622193 (Version 1)
Quarter: 2017Q2

REPORT INFORMATION
  Report Type: Spontaneous
  Country: US (occurrence: US)
  Receive Date: 20170607
  Receipt Date: 20170607
  Transmission Date: 20170830
  Serious: No
  Sender: FDA-Public Use
  Company Number: US-ROCHE-1150626

PATIENT
  Age: 51 Year
  Sex: Male

DRUGS (1)
  1. RETINOIC ACID [Suspect]
     Active Substance: TRETINOIN
     Indication: PRODUCT USED FOR UNKNOWN INDICATION
     Dosage: DOSE: 0.1 %
     Route: 061
     Dates: start: 20120817

REACTIONS (1)
  - Acne [Unknown]

NARRATIVE: CASE EVENT DATE: 20120817
